FAERS Safety Report 11214936 (Version 1)
Quarter: 2015Q2

REPORT INFORMATION
  Report Type: Spontaneous
  Country: US (occurrence: None)
  Receive Date: 20150622
  Receipt Date: 20150622
  Transmission Date: 20150821
  Serious: Yes (Hospitalization)
  Sender: FDA-Public Use
  Company Number: None

PATIENT
  Age: 76 Year
  Sex: Female
  Weight: 119 kg

DRUGS (3)
  1. TEMAZEPAM. [Suspect]
     Active Substance: TEMAZEPAM
     Indication: INSOMNIA
     Dosage: 1 PILL AT BEDTIME TAKEN BY MOUTH
     Route: 048
     Dates: start: 20150603, end: 20150618
  2. ZOLPIDEM [Suspect]
     Active Substance: ZOLPIDEM\ZOLPIDEM TARTRATE
     Indication: INSOMNIA
     Dosage: 1 PILL  AT BEDTIME TAKEN BY MOUTH
     Route: 048
  3. LISINOPRIL. [Concomitant]
     Active Substance: LISINOPRIL

REACTIONS (9)
  - Poor quality sleep [None]
  - Listless [None]
  - Product quality issue [None]
  - Fatigue [None]
  - Anxiety [None]
  - Blood pressure increased [None]
  - Myalgia [None]
  - Gait disturbance [None]
  - Memory impairment [None]

NARRATIVE: CASE EVENT DATE: 20150601
